FAERS Safety Report 6813411-1 (Version None)
Quarter: 2010Q2

REPORT INFORMATION
  Report Type: 
  Country: None (occurrence: None)
  Receive Date: 20100628
  Receipt Date: 20100610
  Transmission Date: 20101027
  Serious: Yes (Death)
  Sender: FDA-Public Use
  Company Number: DKLU1062724

PATIENT
  Age: 4 Month
  Sex: Female

DRUGS (1)
  1. SABRIL [Suspect]
     Indication: INFANTILE SPASMS
     Dosage: 250 MG MILLIGRAM, MORNING ORAL, 500 MG MILLIGRAM(S)  BEDTIME, ORAL
     Route: 048
     Dates: start: 20091101

REACTIONS (3)
  - BRAIN STEM SYNDROME [None]
  - CARDIAC ARREST [None]
  - RESPIRATORY ARREST [None]
